FAERS Safety Report 8128593-1 (Version None)
Quarter: 2012Q1

REPORT INFORMATION
  Report Type: 
  Country: None (occurrence: None)
  Receive Date: 20120210
  Receipt Date: 20111220
  Transmission Date: 20120608
  Serious: No
  Sender: FDA-Public Use
  Company Number: US-BRISTOL-MYERS SQUIBB COMPANY-16288730

PATIENT
  Age: 86 Year
  Sex: Female
  Weight: 54 kg

DRUGS (19)
  1. ORENCIA [Suspect]
     Indication: RHEUMATOID ARTHRITIS
     Dosage: 15NOV10-12DEC11
     Route: 042
     Dates: start: 20101115, end: 20111212
  2. FOLIC ACID [Concomitant]
     Dosage: TABLET
  3. MEVACOR [Concomitant]
  4. MULTI-VITAMIN [Concomitant]
     Dosage: TABLET
  5. INDERAL LA [Concomitant]
     Dosage: INDERAL LA 80MG
  6. FUROSEMIDE [Concomitant]
     Dosage: 1DF=1 TAB,FUROSEMIDE 20MG
  7. NASALCROM [Concomitant]
     Dosage: NASALCROM 5.2MG/ACT
  8. SULFASALAZINE [Suspect]
     Dosage: 2DF=2TABLETS
  9. PRILOSEC [Concomitant]
     Dosage: PRILOSEC 20MG TABS
  10. AZELEX [Concomitant]
  11. PREDNISONE TAB [Concomitant]
     Dosage: 1DF=1 TAB
  12. CLONIDINE HCL [Concomitant]
     Dosage: CLONIDINE HCL .1MG TABS
  13. AMLODIPINE MESILATE [Concomitant]
     Dosage: AMLODIPINE MESILATE 5MG TABS
  14. CALCIUM + VITAMIN D [Concomitant]
  15. REFRESH [Concomitant]
  16. CETIRIZINE HCL [Concomitant]
     Dosage: CETRIZINE HCL 10 MG
  17. METHOTREXATE [Concomitant]
     Dosage: METHOTREXATE 2.5MG 1DF=6TABS
     Route: 048
  18. ASPIRIN [Concomitant]
     Dosage: 1DF=1TABLET
  19. RANITIDINE HCL TABS [Concomitant]
     Dosage: 1DF=1 TAB

REACTIONS (6)
  - PAROSMIA [None]
  - EYE IRRITATION [None]
  - NASAL DRYNESS [None]
  - ROSACEA [None]
  - DYSGEUSIA [None]
  - DRY MOUTH [None]
